FAERS Safety Report 9404635 (Version 1)
Quarter: 2013Q3

REPORT INFORMATION
  Report Type: Spontaneous
  Country: AU (occurrence: AU)
  Receive Date: 20130717
  Receipt Date: 20130717
  Transmission Date: 20140515
  Serious: Yes (Other)
  Sender: FDA-Public Use
  Company Number: PHHY2013AU072380

PATIENT
  Sex: Female

DRUGS (5)
  1. ZOLEDRONATE [Suspect]
  2. EXEMESTANE [Suspect]
  3. CALCIUM [Suspect]
  4. TAXOTERE [Suspect]
  5. VITAMIN D [Suspect]

REACTIONS (6)
  - Febrile neutropenia [Unknown]
  - Oropharyngeal pain [Unknown]
  - Arthralgia [Unknown]
  - Headache [Unknown]
  - Lethargy [Unknown]
  - Pyrexia [Unknown]
